FAERS Safety Report 8242645-7 (Version None)
Quarter: 2012Q1

REPORT INFORMATION
  Report Type: 
  Country: None (occurrence: None)
  Receive Date: 20120329
  Receipt Date: 20120327
  Transmission Date: 20120608
  Serious: No
  Sender: FDA-Public Use
  Company Number: US-BAYER-2012-030224

PATIENT
  Sex: Female

DRUGS (1)
  1. MAGNEVIST [Suspect]
     Indication: NUCLEAR MAGNETIC RESONANCE IMAGING BRAIN
     Dosage: 10 ML, ONCE
     Dates: start: 20120323, end: 20120323

REACTIONS (4)
  - EYE SWELLING [None]
  - ERYTHEMA [None]
  - THROAT IRRITATION [None]
  - PRURITUS [None]
